FAERS Safety Report 6262126-X (Version None)
Quarter: 2009Q3

REPORT INFORMATION
  Report Type: 
  Country: None (occurrence: None)
  Receive Date: 20090702
  Receipt Date: 20090520
  Transmission Date: 20100115
  Serious: Yes (Hospitalization)
  Sender: FDA-Public Use
  Company Number: 1000006367

PATIENT
  Age: 43 Year
  Sex: Male

DRUGS (2)
  1. BYSTOLIC [Suspect]
     Dosage: 5 MG (5 MG, 1 IN 1 D), ORAL
     Route: 048
  2. MULTIPLE DRUGS (NOS) [Concomitant]

REACTIONS (1)
  - RENAL FAILURE ACUTE [None]
